FAERS Safety Report 7229329-9 (Version None)
Quarter: 2011Q1

REPORT INFORMATION
  Report Type: 
  Country: None (occurrence: None)
  Receive Date: 20110117
  Receipt Date: 20110104
  Transmission Date: 20110831
  Serious: Yes (Death, Other)
  Sender: FDA-Public Use
  Company Number: AR-GENZYME-CLOF-1001369

PATIENT
  Age: 9 Year
  Sex: Male

DRUGS (3)
  1. ETOPOSIDE [Suspect]
     Indication: ACUTE BIPHENOTYPIC LEUKAEMIA
     Dosage: UNK
     Route: 042
  2. CLOLAR [Suspect]
     Indication: ACUTE BIPHENOTYPIC LEUKAEMIA
     Dosage: 40 MG/M2, QDX5
     Route: 042
  3. CYCLOPHOSPHAMIDE [Suspect]
     Indication: ACUTE BIPHENOTYPIC LEUKAEMIA
     Dosage: UNK
     Route: 042

REACTIONS (5)
  - PNEUMONIA [None]
  - HEPATOTOXICITY [None]
  - SUBACUTE SCLEROSING PANENCEPHALITIS [None]
  - CYTOMEGALOVIRUS INFECTION [None]
  - BONE MARROW FAILURE [None]
